FAERS Safety Report 4835458-7 (Version None)
Quarter: 2005Q4

REPORT INFORMATION
  Report Type: 
  Country: None (occurrence: None)
  Receive Date: 20051122
  Receipt Date: 20051122
  Transmission Date: 20060501
  Serious: No
  Sender: FDA-Public Use
  Company Number: None

PATIENT
  Age: 2 Year
  Sex: Male
  Weight: 9.5255 kg

DRUGS (3)
  1. EQUATE INFANTS' COLD PLUS COUGH ACETAMINOPHEN 160 MG EQUATE [Suspect]
     Indication: NASAL CONGESTION
     Dosage: DROPPER FULL EVERY 4-6 HOURS
     Dates: start: 20051101, end: 20051115
  2. EQUATE INFANTS' COLD PLUS COUGH ACETAMINOPHEN 160 MG EQUATE [Suspect]
     Indication: NASOPHARYNGITIS
     Dosage: DROPPER FULL EVERY 4-6 HOURS
     Dates: start: 20051101, end: 20051115
  3. EQUATE INFANTS' COLD PLUS COUGH ACETAMINOPHEN 160 MG EQUATE [Suspect]
     Indication: PYREXIA
     Dosage: DROPPER FULL EVERY 4-6 HOURS
     Dates: start: 20051101, end: 20051115

REACTIONS (3)
  - DRUG EFFECT DECREASED [None]
  - PHARMACEUTICAL PRODUCT COMPLAINT [None]
  - VOMITING [None]
